FAERS Safety Report 7750077-0 (Version None)
Quarter: 2011Q3

REPORT INFORMATION
  Report Type: 
  Country: None (occurrence: None)
  Receive Date: 20110914
  Receipt Date: 20110912
  Transmission Date: 20111222
  Serious: No
  Sender: FDA-Public Use
  Company Number: US-PFIZER INC-2011214518

PATIENT
  Age: 87 Year
  Sex: Female

DRUGS (3)
  1. PRESERVISION SOFTGELS WITH LUTEIN [Concomitant]
     Dosage: UNK
     Route: 065
  2. ADVIL PM [Suspect]
     Indication: INSOMNIA
     Dosage: UNK, 1X/DAY
     Route: 048
     Dates: start: 20110801, end: 20110910
  3. SIMVASTATIN [Concomitant]
     Indication: BLOOD CHOLESTEROL INCREASED
     Dosage: UNK
     Route: 065

REACTIONS (1)
  - PRURITUS GENERALISED [None]
